FAERS Safety Report 7916195-9 (Version None)
Quarter: 2011Q4

REPORT INFORMATION
  Report Type: 
  Country: None (occurrence: None)
  Receive Date: 20111116
  Receipt Date: 20111111
  Transmission Date: 20120403
  Serious: No
  Sender: FDA-Public Use
  Company Number: US-BIOGENIDEC-2011BI000697

PATIENT
  Sex: Female

DRUGS (3)
  1. TYSABRI [Suspect]
     Route: 042
     Dates: start: 20100830, end: 20101207
  2. TYSABRI [Suspect]
     Route: 042
  3. TYSABRI [Suspect]
     Indication: MULTIPLE SCLEROSIS
     Route: 042
     Dates: start: 20080729, end: 20100601

REACTIONS (10)
  - BALANCE DISORDER [None]
  - BURNING SENSATION [None]
  - MOBILITY DECREASED [None]
  - DYSKINESIA [None]
  - NEURALGIA [None]
  - CROHN'S DISEASE [None]
  - MUSCLE SPASMS [None]
  - NEUROPATHY PERIPHERAL [None]
  - ASTHENIA [None]
  - FATIGUE [None]
